FAERS Safety Report 4766518-7 (Version None)
Quarter: 2005Q3

REPORT INFORMATION
  Report Type: 
  Country: None (occurrence: None)
  Receive Date: 20050909
  Receipt Date: 20050831
  Transmission Date: 20060218
  Serious: Yes (Hospitalization)
  Sender: FDA-Public Use
  Company Number: ST-2005-008532

PATIENT
  Age: 66 Year
  Sex: Male
  Weight: 51 kg

DRUGS (4)
  1. OLMETEC [Suspect]
     Indication: HYPERTENSION
     Dosage: 20  MG QD PO
     Route: 048
     Dates: start: 20050616, end: 20050722
  2. ZANTAC [Suspect]
     Indication: GASTRIC ULCER
     Dosage: 150 MG QD PO
     Route: 048
     Dates: start: 20050616, end: 20050722
  3. PLETAL [Concomitant]
  4. CALBLOCK [Concomitant]

REACTIONS (2)
  - APHAGIA [None]
  - HENOCH-SCHONLEIN PURPURA [None]
